FAERS Safety Report 20681525 (Version 3)
Quarter: 2022Q3

REPORT INFORMATION
  Report Type: Spontaneous
  Country: US (occurrence: US)
  Receive Date: 20220406
  Receipt Date: 20220805
  Transmission Date: 20221027
  Serious: No
  Sender: FDA-Public Use
  Company Number: US-JNJFOC-20220359387

PATIENT
  Age: 42 Year
  Sex: Female
  Weight: 65.830 kg

DRUGS (7)
  1. SPRAVATO [Suspect]
     Active Substance: ESKETAMINE
     Indication: Product used for unknown indication
  2. SPRAVATO [Suspect]
     Active Substance: ESKETAMINE
     Dosage: EACH NOSTRIL 28 MG FOR 3 WEEKS, THEN HE WAS GOING TO TAKE 84 MG,
  3. SPRAVATO [Suspect]
     Active Substance: ESKETAMINE
     Dosage: STARTED WITH 26 MG FOR 4 WEEKS AND BARELY RAISED THAT LAST WEEK.
  4. HALDOL [Suspect]
     Active Substance: HALOPERIDOL
     Indication: Migraine
     Route: 065
  5. PAXIL [Concomitant]
     Active Substance: PAROXETINE HYDROCHLORIDE
     Indication: Product used for unknown indication
  6. LAMOTRIGINE [Concomitant]
     Active Substance: LAMOTRIGINE
     Indication: Product used for unknown indication
  7. MODAFINIL [Concomitant]
     Active Substance: MODAFINIL
     Indication: Narcolepsy

REACTIONS (7)
  - Inappropriate schedule of product administration [Unknown]
  - Drug ineffective [Unknown]
  - Somnolence [Unknown]
  - Tremor [Unknown]
  - Condition aggravated [Unknown]
  - Off label use [Unknown]
  - Product dose omission issue [Unknown]

NARRATIVE: CASE EVENT DATE: 20220201
